FAERS Safety Report 7679839-5 (Version None)
Quarter: 2011Q3

REPORT INFORMATION
  Report Type: 
  Country: None (occurrence: None)
  Receive Date: 20110812
  Receipt Date: 20110801
  Transmission Date: 20111222
  Serious: Yes (Hospitalization)
  Sender: FDA-Public Use
  Company Number: US-JNJFOC-20100504649

PATIENT
  Sex: Male
  Weight: 45 kg

DRUGS (4)
  1. REMICADE [Suspect]
     Indication: COLITIS ULCERATIVE
     Route: 042
     Dates: start: 20071205
  2. ENTOCORT EC [Concomitant]
  3. METRONIDAZOLE [Concomitant]
  4. REMICADE [Suspect]
     Dosage: TOTAL 10 DOSES
     Route: 042
     Dates: start: 20081209

REACTIONS (1)
  - POUCHITIS [None]
